FAERS Safety Report 16255640 (Version 3)
Quarter: 2019Q2

REPORT INFORMATION
  Report Type: Report from Study
  Country: None (occurrence: AT)
  Receive Date: 20190430
  Receipt Date: 20190509
  Transmission Date: 20190711
  Serious: Yes (Hospitalization)
  Sender: FDA-Public Use
  Company Number: AT-ABBVIE-19S-009-2762721-00

PATIENT
  Age: 81 Year
  Sex: Female

DRUGS (1)
  1. DUODOPA [Suspect]
     Active Substance: CARBIDOPA\LEVODOPA
     Indication: PARKINSON^S DISEASE
     Dosage: DAILY PUMP THERAPY: MD 10ML CR DAYTIME 3,6ML/H ED 1,5ML
     Route: 050
     Dates: start: 20100405

REACTIONS (3)
  - Lower limb fracture [Not Recovered/Not Resolved]
  - Stoma site erythema [Not Recovered/Not Resolved]
  - Device damage [Recovered/Resolved]

NARRATIVE: CASE EVENT DATE: 20190425
